FAERS Safety Report 6193111-4 (Version None)
Quarter: 2009Q2

REPORT INFORMATION
  Report Type: 
  Country: None (occurrence: None)
  Receive Date: 20090514
  Receipt Date: 20090514
  Transmission Date: 20091009
  Serious: Yes (Other)
  Sender: FDA-Public Use
  Company Number: None

PATIENT
  Age: 61 Year
  Sex: Male
  Weight: 97.5234 kg

DRUGS (1)
  1. LISINOPRIL AND HYDROCHLOROTHIAZIDE [Suspect]
     Indication: HYPERTENSION
     Dosage: 1 TABLET DAILY
     Dates: start: 20090129, end: 20090511

REACTIONS (7)
  - DEHYDRATION [None]
  - DYSPNOEA [None]
  - GASTRIC DISORDER [None]
  - INSOMNIA [None]
  - MUSCLE SPASMS [None]
  - POLYURIA [None]
  - SOMNOLENCE [None]
